FAERS Safety Report 22658315 (Version 1)
Quarter: 2023Q2

REPORT INFORMATION
  Report Type: Spontaneous
  Country: US (occurrence: US)
  Receive Date: 20230630
  Receipt Date: 20230630
  Transmission Date: 20230722
  Serious: No
  Sender: FDA-Public Use
  Company Number: US-GLAXOSMITHKLINE-USCH2023029977

PATIENT
  Sex: Female

DRUGS (2)
  1. TARGET NICOTINE [Suspect]
     Active Substance: NICOTINE
     Indication: Product used for unknown indication
     Dosage: UNK
  2. TARGET NICOTINE [Suspect]
     Active Substance: NICOTINE
     Dosage: UNK

REACTIONS (2)
  - Drug ineffective [Unknown]
  - Product complaint [Unknown]
